FAERS Safety Report 4431200-2 (Version None)
Quarter: 2004Q3

REPORT INFORMATION
  Report Type: 
  Country: None (occurrence: None)
  Receive Date: 20040824
  Receipt Date: 20040811
  Transmission Date: 20050211
  Serious: Yes (Hospitalization)
  Sender: FDA-Public Use
  Company Number: FR-JNJFOC-20040706519

PATIENT
  Sex: Male
  Weight: 77 kg

DRUGS (10)
  1. RISPERDAL CONSTA [Suspect]
     Route: 030
     Dates: start: 20040713, end: 20040721
  2. RISPERDAL [Suspect]
     Route: 049
     Dates: start: 20040624
  3. RISPERDAL [Suspect]
     Route: 049
     Dates: start: 20040624
  4. TERCIAN [Concomitant]
     Route: 049
     Dates: start: 20040624
  5. TERCIAN [Concomitant]
     Route: 049
     Dates: start: 20040624
  6. IMOVANE [Concomitant]
     Dates: start: 20040624, end: 20040721
  7. ARTANE [Concomitant]
     Dates: start: 20040624, end: 20040721
  8. THIAMINE [Concomitant]
  9. THIAMINE HCL [Concomitant]
  10. VITAMIN B6 [Concomitant]

REACTIONS (6)
  - AKATHISIA [None]
  - ASTHENIA [None]
  - FEELING DRUNK [None]
  - HYPOTONIA [None]
  - SEDATION [None]
  - SPEECH DISORDER [None]
